FAERS Safety Report 9642893 (Version 1)
Quarter: 2013Q4

REPORT INFORMATION
  Report Type: Report from Study
  Country: US (occurrence: US)
  Receive Date: 20131024
  Receipt Date: 20131024
  Transmission Date: 20140711
  Serious: Yes (Other)
  Sender: FDA-Public Use
  Company Number: PHEH2013US022099

PATIENT
  Age: 87 Year
  Sex: Female

DRUGS (2)
  1. EXELON PATCH [Suspect]
     Indication: DEMENTIA ALZHEIMER^S TYPE
     Dosage: 4.6 MG, DAILY (PATCH 5 CM2)
     Route: 062
     Dates: start: 20131014
  2. ARICEPT [Suspect]
     Dosage: UNK UKN, UNK
     Dates: start: 20130820

REACTIONS (2)
  - Bronchitis [Not Recovered/Not Resolved]
  - Pneumonia [Not Recovered/Not Resolved]
